FAERS Safety Report 7527007-X (Version None)
Quarter: 2011Q2

REPORT INFORMATION
  Report Type: 
  Country: None (occurrence: None)
  Receive Date: 20110606
  Receipt Date: 20110531
  Transmission Date: 20111010
  Serious: Yes (Death)
  Sender: FDA-Public Use
  Company Number: GB-GILEAD-2011-0040087

PATIENT
  Age: 73 Year
  Sex: Female

DRUGS (1)
  1. RANEXA [Suspect]

REACTIONS (1)
  - DEATH [None]
